FAERS Safety Report 4646461-4 (Version None)
Quarter: 2005Q2

REPORT INFORMATION
  Report Type: 
  Country: None (occurrence: None)
  Receive Date: 20050427
  Receipt Date: 20040322
  Transmission Date: 20051028
  Serious: No
  Sender: FDA-Public Use
  Company Number: US-GLAXOSMITHKLINE-A0503848A

PATIENT
  Age: 82 Year
  Sex: Female

DRUGS (6)
  1. FLOVENT [Suspect]
     Indication: ASTHMA
     Dosage: 110MCG PER DAY
     Route: 055
  2. PREVACID [Concomitant]
  3. CLARINEX [Concomitant]
  4. RHINOCORT [Concomitant]
  5. COZAAR [Concomitant]
  6. BLOOD PRESSURE MEDICATION [Concomitant]

REACTIONS (1)
  - HEADACHE [None]
